FAERS Safety Report 11774488 (Version 1)
Quarter: 2015Q4

REPORT INFORMATION
  Report Type: Spontaneous
  Country: CZ (occurrence: CZ)
  Receive Date: 20151124
  Receipt Date: 20151124
  Transmission Date: 20160304
  Serious: Yes (Other)
  Sender: FDA-Public Use
  Company Number: CZ-BAXALTA-2015BLT002807

PATIENT
  Age: 23 Year
  Sex: Female

DRUGS (1)
  1. HYQVIA [Suspect]
     Active Substance: HUMAN IMMUNOGLOBULIN G\HYALURONIDASE RECOMBINANT HUMAN
     Indication: COMBINED IMMUNODEFICIENCY
     Dosage: 25 G, 1X A MONTH
     Route: 065
     Dates: start: 2015

REACTIONS (1)
  - White blood cell count decreased [Not Recovered/Not Resolved]
